FAERS Safety Report 7530836-X (Version None)
Quarter: 2011Q2

REPORT INFORMATION
  Report Type: 
  Country: None (occurrence: None)
  Receive Date: 20110607
  Receipt Date: 20110525
  Transmission Date: 20111010
  Serious: Yes (Other)
  Sender: FDA-Public Use
  Company Number: US-MYLANLABS-2011S1011114

PATIENT
  Age: 11 Year
  Sex: Male

DRUGS (6)
  1. ISOFLURANE [Suspect]
     Indication: GENERAL ANAESTHESIA
     Route: 055
  2. PROPOFOL [Concomitant]
     Indication: GENERAL ANAESTHESIA
     Route: 065
  3. PANCURONIUM BROMIDE [Concomitant]
     Indication: HYPOTONIA
     Route: 065
  4. PROPRANOLOL [Concomitant]
     Indication: LONG QT SYNDROME CONGENITAL
     Route: 065
  5. ONDANSETRON [Suspect]
     Indication: PROCEDURAL NAUSEA
     Route: 065
  6. THIOPENTAL SODIUM [Concomitant]
     Indication: GENERAL ANAESTHESIA
     Route: 065

REACTIONS (1)
  - TORSADE DE POINTES [None]
